FAERS Safety Report 6371353-2 (Version None)
Quarter: 2009Q3

REPORT INFORMATION
  Report Type: 
  Country: None (occurrence: None)
  Receive Date: 20090923
  Receipt Date: 20090918
  Transmission Date: 20100115
  Serious: Yes (Death)
  Sender: FDA-Public Use
  Company Number: NL-ROXANE LABORATORIES, INC.-2009-RO-00957RO

PATIENT
  Age: 70 Year
  Sex: Male

DRUGS (8)
  1. GALANTAMINE HYDROBROMIDE [Suspect]
     Indication: DEMENTIA ALZHEIMER'S TYPE
     Dosage: 8 MG
  2. SPIRONOLACTONE [Suspect]
  3. METOPROLOL TARTRATE [Suspect]
  4. CARBASALATE CALCIUM [Suspect]
  5. LOSARTAN [Suspect]
  6. HYDROCHLOROTHIAZIDE [Suspect]
  7. ROSUVASTATIN CALCIUM [Suspect]
  8. PHENTOLAMINE/PAPAVERINE [Suspect]

REACTIONS (1)
  - CARDIAC ARREST [None]
